FAERS Safety Report 21438145 (Version 1)
Quarter: 2022Q4

REPORT INFORMATION
  Report Type: Spontaneous
  Country: US (occurrence: US)
  Receive Date: 20221011
  Receipt Date: 20221011
  Transmission Date: 20230113
  Serious: No
  Sender: FDA-Public Use
  Company Number: US-009507513-2209USA006215

PATIENT
  Sex: Male

DRUGS (4)
  1. JANUMET [Suspect]
     Active Substance: METFORMIN HYDROCHLORIDE\SITAGLIPTIN PHOSPHATE
     Indication: Diabetes mellitus
     Dosage: 1 DOSAGE FORM (STRENGTH: 50/1000MG),  TWICE DAILY
     Route: 048
     Dates: start: 2020, end: 202207
  2. GLYBURIDE [Suspect]
     Active Substance: GLYBURIDE
     Dosage: 5 MILLIGRAM, TWICE DAILY
     Route: 048
     Dates: start: 2020, end: 2022
  3. GLYBURIDE [Suspect]
     Active Substance: GLYBURIDE
     Dosage: 10 MILLIGRAM, TWICE DAILY
     Route: 048
     Dates: start: 2022
  4. METFORMIN [Suspect]
     Active Substance: METFORMIN HYDROCHLORIDE
     Indication: Diabetes mellitus
     Dosage: UNK
     Route: 048
     Dates: start: 2022

REACTIONS (1)
  - Blood glucose increased [Not Recovered/Not Resolved]

NARRATIVE: CASE EVENT DATE: 20220101
